FAERS Safety Report 9587589 (Version 1)
Quarter: 2013Q4

REPORT INFORMATION
  Report Type: Spontaneous
  Country: US (occurrence: US)
  Receive Date: 20131003
  Receipt Date: 20131003
  Transmission Date: 20140711
  Serious: No
  Sender: FDA-Public Use
  Company Number: US-MYLANLABS-2013S1019132

PATIENT
  Age: 76 Year
  Sex: Female
  Weight: 72.58 kg

DRUGS (2)
  1. METOPROLOL SUCCINATE EXTENDED-RELEASE TABLETS USP [Suspect]
     Indication: ANGINA PECTORIS
     Route: 048
     Dates: start: 201308
  2. SYNTHROID [Concomitant]
     Indication: THYROIDECTOMY
     Dosage: TAKEN FOR 14 YEARS
     Route: 048

REACTIONS (5)
  - Drug effect decreased [Not Recovered/Not Resolved]
  - Angina pectoris [Not Recovered/Not Resolved]
  - Night sweats [Not Recovered/Not Resolved]
  - Arthralgia [Not Recovered/Not Resolved]
  - Dysgeusia [Not Recovered/Not Resolved]
